FAERS Safety Report 7676782-2 (Version None)
Quarter: 2011Q3

REPORT INFORMATION
  Report Type: 
  Country: None (occurrence: None)
  Receive Date: 20110805
  Receipt Date: 20110721
  Transmission Date: 20111222
  Serious: Yes (Other)
  Sender: FDA-Public Use
  Company Number: 2011MA009256

PATIENT
  Age: 43 Year
  Sex: Female

DRUGS (1)
  1. ZOLPIDEM TARTRATE EXTENDED-RELEASE TABLETS 12.5MG (ASALLC) (ZOLPIDEM) [Suspect]
     Indication: INSOMNIA
     Dosage: 400 MG; HS

REACTIONS (12)
  - LOSS OF CONSCIOUSNESS [None]
  - GRAND MAL CONVULSION [None]
  - PERSONALITY CHANGE [None]
  - DRUG WITHDRAWAL SYNDROME [None]
  - ANXIETY [None]
  - ECONOMIC PROBLEM [None]
  - DRUG TOLERANCE [None]
  - DRUG DEPENDENCE [None]
  - DYSKINESIA [None]
  - PSYCHOMOTOR RETARDATION [None]
  - RESTLESSNESS [None]
  - FACIAL SPASM [None]
